FAERS Safety Report 6288230-8 (Version None)
Quarter: 2009Q3

REPORT INFORMATION
  Report Type: 
  Country: None (occurrence: None)
  Receive Date: 20090727
  Receipt Date: 20090727
  Transmission Date: 20100115
  Serious: No
  Sender: FDA-Public Use
  Company Number: None

PATIENT
  Sex: Female

DRUGS (1)
  1. CIPRO [Suspect]
     Indication: ABDOMINAL ABSCESS
     Dosage: 400MG EVERY 12 HOURS IV
     Route: 042
     Dates: start: 20090714, end: 20090722

REACTIONS (1)
  - PRURITUS GENERALISED [None]
